FAERS Safety Report 25776369 (Version 1)
Quarter: 2025Q3

REPORT INFORMATION
  Report Type: Spontaneous
  Country: US (occurrence: US)
  Receive Date: 20250909
  Receipt Date: 20250909
  Transmission Date: 20251021
  Serious: No
  Sender: DOMPE FARMACEUTICI
  Company Number: US-FARMAPROD-202408-3036

PATIENT
  Sex: Male

DRUGS (7)
  1. OXERVATE [Suspect]
     Active Substance: CENEGERMIN-BKBJ
     Indication: Neurotrophic keratopathy
     Route: 047
     Dates: start: 20240814
  2. IRBESARTAN [Concomitant]
     Active Substance: IRBESARTAN
  3. REFRESH LIQUIGEL [Concomitant]
     Active Substance: CARBOXYMETHYLCELLULOSE SODIUM
  4. ASPIRIN [Concomitant]
     Active Substance: ASPIRIN
  5. RESTASIS [Concomitant]
     Active Substance: CYCLOSPORINE
  6. LUMIGAN [Concomitant]
     Active Substance: BIMATOPROST
  7. COSOPT [Concomitant]
     Active Substance: DORZOLAMIDE HYDROCHLORIDE\TIMOLOL MALEATE

REACTIONS (2)
  - Product storage error [Recovered/Resolved]
  - Eye pain [Recovering/Resolving]
